FAERS Safety Report 6132408-0 (Version None)
Quarter: 2009Q1

REPORT INFORMATION
  Report Type: 
  Country: None (occurrence: None)
  Receive Date: 20090324
  Receipt Date: 20090310
  Transmission Date: 20090719
  Serious: Yes (Death)
  Sender: FDA-Public Use
  Company Number: WAES 0903USA01900

PATIENT

DRUGS (2)
  1. FOSAMAX [Suspect]
     Indication: OSTEOPOROSIS
     Dosage: 5 MG/DAILY PO
     Route: 048
  2. ALFACALCIDOL [Concomitant]

REACTIONS (3)
  - ANOREXIA [None]
  - GASTRIC CANCER [None]
  - MELAENA [None]
